FAERS Safety Report 16624350 (Version 1)
Quarter: 2019Q3

REPORT INFORMATION
  Report Type: Spontaneous
  Country: US (occurrence: US)
  Receive Date: 20190611
  Receipt Date: 20190611
  Transmission Date: 20191004
  Serious: No
  Sender: FDA-Public Use
  Company Number: None

PATIENT
  Age: 41 Year
  Sex: Female

DRUGS (1)
  1. OLUMIANT [Suspect]
     Active Substance: BARICITINIB
     Indication: RHEUMATOID ARTHRITIS
     Dates: start: 20190325, end: 20190425

REACTIONS (2)
  - Type III immune complex mediated reaction [None]
  - Injection site swelling [None]

NARRATIVE: CASE EVENT DATE: 20190611
